FAERS Safety Report 9870250 (Version 1)
Quarter: 2014Q1

REPORT INFORMATION
  Report Type: Spontaneous
  Country: CO (occurrence: CO)
  Receive Date: 20140205
  Receipt Date: 20140205
  Transmission Date: 20141002
  Serious: Yes (Other)
  Sender: FDA-Public Use
  Company Number: CO-PFIZER INC-2014030026

PATIENT
  Age: 67 Year
  Sex: Male

DRUGS (1)
  1. XALATAN [Suspect]
     Indication: GLAUCOMA
     Dosage: 2.5 ML, DAILY
     Route: 047
     Dates: start: 2011

REACTIONS (1)
  - Prostatic disorder [Recovering/Resolving]
